FAERS Safety Report 9708139 (Version 2)
Quarter: 2014Q4

REPORT INFORMATION
  Report Type: Report from Study
  Country: FR (occurrence: FR)
  Receive Date: 20131125
  Receipt Date: 20141118
  Transmission Date: 20150529
  Serious: Yes (Other)
  Sender: FDA-Public Use
  Company Number: FR-PFIZER INC-2013327940

PATIENT
  Age: 51 Year
  Sex: Male
  Weight: 80 kg

DRUGS (7)
  1. CICLOSPORIN [Suspect]
     Active Substance: CYCLOSPORINE
     Indication: BONE MARROW FAILURE
     Dosage: BETWEEN 200 AND 400 MG PER DAY
  2. POLARAMINE [Concomitant]
     Active Substance: DEXCHLORPHENIRAMINE MALEATE
     Indication: PREMEDICATION
     Dosage: 1 DF, UNK
     Route: 042
  3. REVOLADE [Concomitant]
     Active Substance: ELTROMBOPAG
     Dosage: UNK
     Dates: start: 20131211
  4. ATGAM [Suspect]
     Active Substance: EQUINE THYMOCYTE IMMUNE GLOBULIN
     Indication: BONE MARROW FAILURE
     Dosage: 40 MG/KG, DAILY
     Route: 042
     Dates: start: 20130330, end: 20130402
  5. SOLU-MEDROL [Suspect]
     Active Substance: METHYLPREDNISOLONE SODIUM SUCCINATE
     Indication: BONE MARROW FAILURE
  6. SOLU-MEDROL [Suspect]
     Active Substance: METHYLPREDNISOLONE SODIUM SUCCINATE
     Indication: PREMEDICATION
     Dosage: 0.5 MG/KG, DAILY
  7. PERFALGAN [Concomitant]
     Active Substance: ACETAMINOPHEN
     Indication: PREMEDICATION
     Route: 042

REACTIONS (12)
  - Depression [Recovering/Resolving]
  - Atrial fibrillation [Recovered/Resolved]
  - Urinary tract infection [Unknown]
  - Thrombosis [Recovered/Resolved]
  - Sodium retention [Recovering/Resolving]
  - Folliculitis [Recovered/Resolved]
  - Staphylococcal bacteraemia [Recovered/Resolved]
  - Diabetes mellitus [Recovering/Resolving]
  - Acute kidney injury [Recovering/Resolving]
  - Treatment failure [Not Recovered/Not Resolved]
  - Hypertension [Recovering/Resolving]
  - Renal failure [Recovering/Resolving]

NARRATIVE: CASE EVENT DATE: 20130412
